FAERS Safety Report 8337276-4 (Version None)
Quarter: 2012Q2

REPORT INFORMATION
  Report Type: 
  Country: None (occurrence: None)
  Receive Date: 20120504
  Receipt Date: 20120426
  Transmission Date: 20120825
  Serious: Yes (Other)
  Sender: FDA-Public Use
  Company Number: JP-VERTEX PHARMACEUTICALS INC.-AE-2012-003185

PATIENT
  Age: 63 Year
  Sex: Male

DRUGS (8)
  1. PEG-INTRON [Concomitant]
     Indication: HEPATITIS C
     Route: 051
     Dates: start: 20120224, end: 20120224
  2. DIGOXIN [Concomitant]
     Route: 048
  3. LEVOTHYROXINE SODIUM [Concomitant]
     Route: 048
  4. LANDEL10_20 [Concomitant]
     Route: 048
  5. REBETOL [Concomitant]
     Route: 048
     Dates: start: 20120224, end: 20120227
  6. DIOVAN [Concomitant]
     Route: 048
  7. WARFARIN SODIUM [Concomitant]
     Route: 048
  8. TELAVIC (TELAPREVIR) [Suspect]
     Indication: HEPATITIS C
     Route: 048
     Dates: start: 20120224, end: 20120226

REACTIONS (3)
  - VOMITING [None]
  - RENAL DISORDER [None]
  - NAUSEA [None]
